FAERS Safety Report 20326874 (Version 1)
Quarter: 2022Q1

REPORT INFORMATION
  Report Type: Spontaneous
  Country: US (occurrence: None)
  Receive Date: 20220111
  Receipt Date: 20220111
  Transmission Date: 20220423
  Serious: Yes (Death)
  Sender: FDA-Public Use
  Company Number: None

PATIENT
  Age: 86 Year
  Sex: Male

DRUGS (1)
  1. PROCRIT [Suspect]
     Active Substance: ERYTHROPOIETIN
     Dosage: 10,000 U/ML  OTHER SC?
     Route: 058
     Dates: start: 20211122, end: 20211222

REACTIONS (1)
  - Death [None]

NARRATIVE: CASE EVENT DATE: 20220103
